FAERS Safety Report 18397258 (Version 1)
Quarter: 2020Q4

REPORT INFORMATION
  Report Type: Spontaneous
  Country: IL (occurrence: IL)
  Receive Date: 20201019
  Receipt Date: 20201019
  Transmission Date: 20210114
  Serious: Yes (Hospitalization)
  Sender: FDA-Public Use
  Company Number: IL-ASTRAZENECA-2020SF31715

PATIENT
  Sex: Male

DRUGS (2)
  1. IMFINZI [Suspect]
     Active Substance: DURVALUMAB
     Route: 042
  2. IMFINZI [Suspect]
     Active Substance: DURVALUMAB
     Route: 042

REACTIONS (4)
  - Oxygen saturation decreased [Unknown]
  - Productive cough [Unknown]
  - Secretion discharge [Unknown]
  - Bacterial infection [Unknown]
